FAERS Safety Report 8975682 (Version 1)
Quarter: 2012Q4

REPORT INFORMATION
  Report Type: 
  Country: US (occurrence: US)
  Receive Date: 20121219
  Receipt Date: 20121219
  Transmission Date: 20130627
  Serious: Yes (Hospitalization)
  Sender: FDA-Public Use
  Company Number: US-ELI_LILLY_AND_COMPANY-US201212003188

PATIENT
  Sex: Male

DRUGS (4)
  1. EFFIENT [Suspect]
     Indication: STENT PLACEMENT
     Dosage: 10 mg, qd
  2. INTEGRILIN [Concomitant]
  3. HEPARIN [Concomitant]
  4. BETA BLOCKING AGENTS [Concomitant]

REACTIONS (2)
  - Thrombosis in device [Unknown]
  - Hypercoagulation [Unknown]
